FAERS Safety Report 7454373-6 (Version None)
Quarter: 2011Q2

REPORT INFORMATION
  Report Type: 
  Country: None (occurrence: None)
  Receive Date: 20110503
  Receipt Date: 20110429
  Transmission Date: 20111010
  Serious: Yes (Other)
  Sender: FDA-Public Use
  Company Number: US-BAYER-2011-037121

PATIENT
  Sex: Female

DRUGS (3)
  1. YASMIN [Suspect]
     Dosage: UNK
  2. OCELLA [Suspect]
     Dosage: UNK
  3. YAZ [Suspect]
     Dosage: UNK

REACTIONS (5)
  - EMOTIONAL DISTRESS [None]
  - GALLBLADDER INJURY [None]
  - INJURY [None]
  - PAIN [None]
  - ANXIETY [None]
